FAERS Safety Report 19698427 (Version 1)
Quarter: 2021Q3

REPORT INFORMATION
  Report Type: Spontaneous
  Country: US (occurrence: US)
  Receive Date: 20210813
  Receipt Date: 20210813
  Transmission Date: 20211014
  Serious: Yes (Hospitalization)
  Sender: FDA-Public Use
  Company Number: None

PATIENT
  Age: 29 Year
  Sex: Male
  Weight: 57.61 kg

DRUGS (3)
  1. BACLOFEN. [Suspect]
     Active Substance: BACLOFEN
  2. SYNCHROMED II [Suspect]
     Active Substance: DEVICE
     Dates: start: 20151025, end: 20210809
  3. BACLOFEN. [Suspect]
     Active Substance: BACLOFEN

REACTIONS (3)
  - Withdrawal syndrome [None]
  - Device failure [None]
  - Pneumonia aspiration [None]

NARRATIVE: CASE EVENT DATE: 20210731
